FAERS Safety Report 7183538-6 (Version None)
Quarter: 2010Q4

REPORT INFORMATION
  Report Type: 
  Country: None (occurrence: None)
  Receive Date: 20101222
  Receipt Date: 20101216
  Transmission Date: 20110411
  Serious: Yes (Life-Threatening, Hospitalization, Other)
  Sender: FDA-Public Use
  Company Number: PHHO2010AU12999

PATIENT
  Sex: Female
  Weight: 62 kg

DRUGS (12)
  1. AMN107 AMN+ [Suspect]
     Indication: GASTROINTESTINAL STROMAL TUMOUR
     Dosage: 800 MG/DAY
     Route: 048
     Dates: start: 20100520, end: 20101129
  2. FLUDROCORTISONE [Suspect]
     Dosage: UNK
  3. HYDROCORTISONE [Concomitant]
     Indication: ORTHOSTATIC HYPOTENSION
     Dosage: UNK
  4. ENDEP [Concomitant]
     Indication: DEPRESSION
     Dosage: UNK
  5. ASPIRIN [Concomitant]
  6. CEPHALEXIN [Concomitant]
     Indication: URINARY TRACT INFECTION
     Dosage: UNK
  7. MAXOLON [Concomitant]
     Dosage: UNK
  8. AMITRIPTYLINE [Concomitant]
     Dosage: UNK
  9. NEULACTIL [Concomitant]
  10. MIRTAZAPINE [Concomitant]
  11. TIMOLOL [Concomitant]
  12. MYLANTA                                 /AUS/ [Concomitant]

REACTIONS (8)
  - ANAEMIA [None]
  - CONSTIPATION [None]
  - GASTRITIS [None]
  - GASTROINTESTINAL HAEMORRHAGE [None]
  - HAEMATEMESIS [None]
  - MELAENA [None]
  - OESOPHAGITIS [None]
  - ORTHOSTATIC HYPOTENSION [None]
